FAERS Safety Report 19834387 (Version 1)
Quarter: 2021Q3

REPORT INFORMATION
  Report Type: Spontaneous
  Country: US (occurrence: US)
  Receive Date: 20210915
  Receipt Date: 20210915
  Transmission Date: 20211014
  Serious: Yes (Other)
  Sender: FDA-Public Use
  Company Number: US-GLAXOSMITHKLINE-US2021GSK194779

PATIENT
  Sex: Female

DRUGS (14)
  1. ZANTAC [Suspect]
     Active Substance: RANITIDINE HYDROCHLORIDE
     Indication: DYSPEPSIA
     Dosage: 150 MG, QD,INTERCHANGEABLY WITH RANITIDINE
     Route: 065
     Dates: start: 2002, end: 2016
  2. ZANTAC [Suspect]
     Active Substance: RANITIDINE HYDROCHLORIDE
     Indication: GASTROOESOPHAGEAL REFLUX DISEASE
     Dosage: 300 MG, QD,INTERCHANGEABLY WITH RANITIDINE
     Route: 065
     Dates: start: 2002, end: 2016
  3. RANITIDINE. [Suspect]
     Active Substance: RANITIDINE
     Indication: GASTROOESOPHAGEAL REFLUX DISEASE
     Dosage: 300 MG, QD,INTERCHANGEABLY WITH ZANTAC
     Route: 065
     Dates: start: 2002, end: 2016
  4. ZANTAC [Suspect]
     Active Substance: RANITIDINE HYDROCHLORIDE
     Indication: DYSPEPSIA
     Dosage: 150 MG, QD,INTERCHANGEABLY WITH RANITIDINE
     Route: 065
     Dates: start: 2002, end: 2016
  5. RANITIDINE CAPSULE [Suspect]
     Active Substance: RANITIDINE
     Indication: DYSPEPSIA
     Dosage: 150 MG, QD,INTERCHANGEABLY WITH RANITIDINE
     Route: 065
     Dates: start: 2002, end: 2016
  6. RANITIDINE CAPSULE [Suspect]
     Active Substance: RANITIDINE
     Indication: GASTROOESOPHAGEAL REFLUX DISEASE
     Dosage: 300 MG, QD,INTERCHANGEABLY WITH RANITIDINE
     Route: 065
     Dates: start: 2002, end: 2016
  7. RANITIDINE. [Suspect]
     Active Substance: RANITIDINE
     Indication: DYSPEPSIA
     Dosage: 150 MG, QD,INTERCHANGEABLY WITH ZANTAC
     Route: 065
     Dates: start: 2002, end: 2016
  8. RANITIDINE. [Suspect]
     Active Substance: RANITIDINE
     Indication: GASTROOESOPHAGEAL REFLUX DISEASE
     Dosage: 300 MG, QD,INTERCHANGEABLY WITH ZANTAC
     Route: 065
     Dates: start: 2002, end: 2016
  9. ZANTAC [Suspect]
     Active Substance: RANITIDINE HYDROCHLORIDE
     Indication: GASTROOESOPHAGEAL REFLUX DISEASE
     Dosage: 300 MG, QD,INTERCHANGEABLY WITH RANITIDINE
     Route: 065
     Dates: start: 2002, end: 2016
  10. ZANTAC [Suspect]
     Active Substance: RANITIDINE HYDROCHLORIDE
     Indication: DYSPEPSIA
     Dosage: 150 MG, QD,INTERCHANGEABLY WITH RANITIDINE
     Route: 065
     Dates: start: 2002, end: 2016
  11. ZANTAC [Suspect]
     Active Substance: RANITIDINE HYDROCHLORIDE
     Indication: GASTROOESOPHAGEAL REFLUX DISEASE
     Dosage: 300 MG, QD,INTERCHANGEABLY WITH RANITIDINE
     Route: 065
     Dates: start: 2002, end: 2016
  12. RANITIDINE. [Suspect]
     Active Substance: RANITIDINE
     Indication: DYSPEPSIA
     Dosage: 150 MG, QD,INTERCHANGEABLY WITH ZANTAC
     Route: 065
     Dates: start: 2002, end: 2016
  13. RANITIDINE HYDROCHLORIDE. [Suspect]
     Active Substance: RANITIDINE HYDROCHLORIDE
     Indication: DYSPEPSIA
  14. RANITIDINE HYDROCHLORIDE. [Suspect]
     Active Substance: RANITIDINE HYDROCHLORIDE
     Indication: GASTROOESOPHAGEAL REFLUX DISEASE
     Dosage: UNK UNK, QD
     Route: 042
     Dates: start: 2016, end: 2016

REACTIONS (1)
  - Breast cancer [Unknown]
